FAERS Safety Report 7270987-0 (Version None)
Quarter: 2011Q1

REPORT INFORMATION
  Report Type: 
  Country: None (occurrence: None)
  Receive Date: 20110202
  Receipt Date: 20110125
  Transmission Date: 20110831
  Serious: Yes (Hospitalization, Other)
  Sender: FDA-Public Use
  Company Number: CO-ELI_LILLY_AND_COMPANY-CO201101007388

PATIENT
  Age: 67 Year
  Sex: Male

DRUGS (10)
  1. COUMADIN [Concomitant]
  2. AMLODIPINE BESYLATE AND VALSARTAN [Concomitant]
  3. DILATREND [Concomitant]
  4. BYETTA [Suspect]
     Dosage: UNK, UNKNOWN
  5. ATORVASTATIN [Concomitant]
  6. PIROXIN [Concomitant]
  7. SPIRONOLACTONE [Concomitant]
  8. BYETTA [Suspect]
     Indication: TYPE 2 DIABETES MELLITUS
     Dosage: 10 UG, 2/D
     Route: 058
     Dates: start: 20100818, end: 20101212
  9. LANTUS [Concomitant]
     Dosage: 35 U, UNKNOWN
  10. METFORMIN [Concomitant]
     Indication: DIABETES MELLITUS

REACTIONS (1)
  - CHOLELITHIASIS [None]
